FAERS Safety Report 4966180-4 (Version None)
Quarter: 2006Q2

REPORT INFORMATION
  Report Type: 
  Country: None (occurrence: None)
  Receive Date: 20060407
  Receipt Date: 20060320
  Transmission Date: 20061013
  Serious: Yes (Death)
  Sender: FDA-Public Use
  Company Number: US-BRISTOL-MYERS SQUIBB COMPANY-13321070

PATIENT
  Age: 51 Year
  Sex: Female
  Weight: 116 kg

DRUGS (2)
  1. TAXOL [Suspect]
     Indication: BREAST CANCER
     Route: 042
     Dates: start: 20030401, end: 20050101
  2. SODIUM CHLORIDE [Concomitant]

REACTIONS (1)
  - DEATH [None]
